FAERS Safety Report 7200155-X (Version None)
Quarter: 2010Q4

REPORT INFORMATION
  Report Type: 
  Country: None (occurrence: None)
  Receive Date: 20101228
  Receipt Date: 20101224
  Transmission Date: 20110411
  Serious: Yes (Death)
  Sender: FDA-Public Use
  Company Number: JP-JNJFOC-20090500349

PATIENT
  Sex: Male
  Weight: 38 kg

DRUGS (5)
  1. ITRIZOLE [Suspect]
     Indication: FUNGAL INFECTION
     Route: 041
  2. ITRIZOLE [Suspect]
     Indication: BRONCHOPULMONARY ASPERGILLOSIS
     Route: 041
  3. MICAFUNGIN SODIUM [Concomitant]
     Route: 042
  4. CEFOZOPRAN HYDROCHLORIDE [Concomitant]
     Indication: PROPHYLAXIS
     Route: 042
  5. LEVOFLOXACIN [Concomitant]
     Indication: PROPHYLAXIS
     Route: 048

REACTIONS (2)
  - BRONCHOPULMONARY ASPERGILLOSIS [None]
  - PNEUMONIA BACTERIAL [None]
